FAERS Safety Report 8547711-4 (Version None)
Quarter: 2012Q3

REPORT INFORMATION
  Report Type: 
  Country: None (occurrence: None)
  Receive Date: 20120727
  Receipt Date: 20120427
  Transmission Date: 20120928
  Serious: No
  Sender: FDA-Public Use
  Company Number: US-ASTRAZENECA-2012SE27934

PATIENT
  Age: 34 Year
  Sex: Female
  Weight: 52.2 kg

DRUGS (4)
  1. SEROQUEL [Suspect]
     Indication: BIPOLAR II DISORDER
     Route: 048
  2. EFFEXOR [Concomitant]
  3. WELLBUTRIN [Concomitant]
  4. SYNTHROID [Concomitant]

REACTIONS (3)
  - NASAL CONGESTION [None]
  - CONDITION AGGRAVATED [None]
  - DYSPNOEA [None]
